FAERS Safety Report 6416539-3 (Version None)
Quarter: 2009Q4

REPORT INFORMATION
  Report Type: 
  Country: None (occurrence: None)
  Receive Date: 20091027
  Receipt Date: 20091020
  Transmission Date: 20100525
  Serious: Yes (Other)
  Sender: FDA-Public Use
  Company Number: PHHY2009JP41637

PATIENT
  Sex: Male

DRUGS (2)
  1. LAMISIL [Suspect]
     Dosage: 125 MG, DAILY
     Route: 048
     Dates: start: 20090904, end: 20090924
  2. LAMISIL [Suspect]
     Dosage: 125 MG, DAILY
     Route: 048
     Dates: start: 20090925

REACTIONS (3)
  - MONOCYTE COUNT INCREASED [None]
  - RETINAL HAEMORRHAGE [None]
  - VISUAL ACUITY REDUCED [None]
